FAERS Safety Report 10063992 (Version 4)
Quarter: 2014Q2

REPORT INFORMATION
  Report Type: Spontaneous
  Country: CA (occurrence: CA)
  Receive Date: 20140408
  Receipt Date: 20140630
  Transmission Date: 20141212
  Serious: Yes (Other)
  Sender: FDA-Public Use
  Company Number: CA-ROCHE-1374952

PATIENT
  Sex: Female

DRUGS (9)
  1. HERCEPTIN [Suspect]
     Indication: PRODUCT USED FOR UNKNOWN INDICATION
     Route: 065
     Dates: start: 20020115
  2. LETROZOLE [Concomitant]
     Route: 065
     Dates: start: 201308
  3. CELEBREX [Concomitant]
  4. DESMOPRESSIN [Concomitant]
  5. SYNTHROID [Concomitant]
  6. STEMETIL [Concomitant]
  7. COLACE [Concomitant]
  8. IMOVANE [Concomitant]
  9. EFFEXOR [Concomitant]

REACTIONS (4)
  - Hypothyroidism [Unknown]
  - Lymphadenopathy [Unknown]
  - Disease progression [Unknown]
  - Drug ineffective [Unknown]
